FAERS Safety Report 24448701 (Version 1)
Quarter: 2024Q4

REPORT INFORMATION
  Report Type: Report from Study
  Country: ZA (occurrence: ZA)
  Receive Date: 20241017
  Receipt Date: 20241017
  Transmission Date: 20250115
  Serious: No
  Sender: ROCHE
  Company Number: ZA-ROCHE-10000103875

PATIENT
  Sex: Male

DRUGS (1)
  1. OCREVUS [Suspect]
     Active Substance: OCRELIZUMAB
     Indication: Multiple sclerosis
     Dosage: THERE AFTER 600MG EVERY 6 MONTHS
     Route: 042
     Dates: start: 20221111

REACTIONS (3)
  - Influenza [Unknown]
  - Hypogammaglobulinaemia [Unknown]
  - C-reactive protein [Unknown]
